FAERS Safety Report 6571271-0 (Version None)
Quarter: 2010Q1

REPORT INFORMATION
  Report Type: 
  Country: None (occurrence: None)
  Receive Date: 20100129
  Receipt Date: 20100119
  Transmission Date: 20100710
  Serious: Yes (Hospitalization)
  Sender: FDA-Public Use
  Company Number: 005222

PATIENT
  Age: 32 Year
  Sex: Female

DRUGS (5)
  1. PREDNISOLONE [Suspect]
     Indication: IMMUNOSUPPRESSANT DRUG THERAPY
     Dosage: (10 MG QD)
  2. AZATHIOPRINE [Suspect]
     Indication: IMMUNOSUPPRESSANT DRUG THERAPY
     Dosage: (50 MG QD)
  3. TACROLIMUS [Suspect]
     Indication: IMMUNOSUPPRESSANT DRUG THERAPY
     Dosage: (3 MG QD)
  4. TRIMETHOPRIM [Suspect]
     Indication: PROPHYLAXIS
  5. LEVOTHYROXINE SODIUM [Concomitant]

REACTIONS (5)
  - DIABETES MELLITUS [None]
  - LUNG CONSOLIDATION [None]
  - LUNG DISORDER [None]
  - NOCARDIOSIS [None]
  - PANCYTOPENIA [None]
